FAERS Safety Report 9216875 (Version 2)
Quarter: 2013Q2

REPORT INFORMATION
  Report Type: Spontaneous
  Country: CA (occurrence: CA)
  Receive Date: 20130408
  Receipt Date: 20130408
  Transmission Date: 20140414
  Serious: Yes (Other)
  Sender: FDA-Public Use
  Company Number: CA-PFIZER INC-2013106923

PATIENT
  Age: 3 Month
  Sex: Female

DRUGS (2)
  1. ADVIL [Suspect]
     Dosage: UNK
  2. ADVIL [Suspect]
     Dosage: UNK

REACTIONS (3)
  - Throat irritation [Unknown]
  - Crying [Unknown]
  - Burn oesophageal [None]
